FAERS Safety Report 15128353 (Version 1)
Quarter: 2018Q3

REPORT INFORMATION
  Report Type: Spontaneous
  Country: VN (occurrence: VN)
  Receive Date: 20180711
  Receipt Date: 20180711
  Transmission Date: 20181010
  Serious: Yes (Other)
  Sender: FDA-Public Use
  Company Number: VN-B.I. PHARMACEUTICALS,INC./RIDGEFIELD-2018-BI-029809

PATIENT
  Age: 4 Decade
  Sex: Male

DRUGS (2)
  1. MOBIC [Suspect]
     Active Substance: MELOXICAM
     Indication: GOUT
     Route: 065
  2. ALPHACHYMO CHOAY [Concomitant]
     Indication: GOUT
     Route: 065

REACTIONS (3)
  - Hypotension [Recovered/Resolved]
  - Injection site irritation [Recovered/Resolved]
  - Off label use [Recovered/Resolved]
